FAERS Safety Report 15664956 (Version 1)
Quarter: 2018Q4

REPORT INFORMATION
  Report Type: Report from Study
  Country: US (occurrence: US)
  Receive Date: 20181128
  Receipt Date: 20181128
  Transmission Date: 20190205
  Serious: Yes (Hospitalization, Other)
  Sender: FDA-Public Use
  Company Number: US-JUBILANT CADISTA PHARMACEUTICALS-2018JUB00476

PATIENT
  Age: 53 Year
  Sex: Female
  Weight: 91.6 kg

DRUGS (14)
  1. PREDNISONE. [Suspect]
     Active Substance: PREDNISONE
     Dosage: 35 MG, 1X/DAY
     Route: 048
     Dates: start: 20180917, end: 20180920
  2. LITHIUM. [Concomitant]
     Active Substance: LITHIUM
     Dosage: UNK
     Dates: start: 20180227
  3. PREDNISONE. [Suspect]
     Active Substance: PREDNISONE
     Dosage: 0.5 MG/KG, 1X/DAY
     Route: 048
     Dates: start: 20180917, end: 20180920
  4. INCB039110 (ITACITINIB) OR PLACEBO [Suspect]
     Active Substance: ITACITINIB
     Dosage: UNK
     Dates: start: 20181005, end: 20181023
  5. HUMALOG [Concomitant]
     Active Substance: INSULIN LISPRO
     Dosage: UNK
     Dates: start: 20180731
  6. LANTUS [Concomitant]
     Active Substance: INSULIN GLARGINE
     Dosage: UNK
     Dates: start: 20180730
  7. PREDNISONE. [Suspect]
     Active Substance: PREDNISONE
     Dosage: 40 MG, 1X/DAY
     Route: 048
     Dates: start: 20180927, end: 20181022
  8. METHYLPREDNISOLONE. [Suspect]
     Active Substance: METHYLPREDNISOLONE
     Dosage: 26 MG, 1X/DAY
     Route: 042
     Dates: start: 20180926, end: 20180926
  9. METHYLPREDNISOLONE. [Suspect]
     Active Substance: METHYLPREDNISOLONE
     Dosage: 50 MG EVERY 6 HOURS
     Dates: start: 20181023
  10. INCB039110 (ITACITINIB) OR PLACEBO [Suspect]
     Active Substance: ITACITINIB
     Dosage: UNK
     Dates: start: 20181001, end: 20181003
  11. METHYLPREDNISOLONE. [Suspect]
     Active Substance: METHYLPREDNISOLONE
     Indication: ACUTE GRAFT VERSUS HOST DISEASE
     Dosage: 40 MG, 1X/DAY
     Route: 042
     Dates: start: 20180921
  12. LAMOTRIGINE. [Concomitant]
     Active Substance: LAMOTRIGINE
     Dosage: UNK
     Dates: start: 20180409
  13. PREDNISONE. [Suspect]
     Active Substance: PREDNISONE
     Indication: ACUTE GRAFT VERSUS HOST DISEASE
     Dosage: 50 MG, 1X/DAY
     Route: 048
     Dates: start: 20180917, end: 20180920
  14. INCB039110 (ITACITINIB) OR PLACEBO [Suspect]
     Active Substance: ITACITINIB
     Indication: ACUTE GRAFT VERSUS HOST DISEASE
     Dosage: 200 MG, 1X/DAY
     Route: 048
     Dates: start: 20180917, end: 20180917

REACTIONS (14)
  - Dehydration [Unknown]
  - Urinary tract infection [Recovered/Resolved]
  - Malaise [Unknown]
  - Shock [Unknown]
  - Rash [Unknown]
  - Encephalopathy [Recovered/Resolved]
  - Hyperglycaemia [Recovered/Resolved]
  - Decreased appetite [Unknown]
  - Rhinovirus infection [Not Recovered/Not Resolved]
  - Enterovirus infection [Not Recovered/Not Resolved]
  - Agitation [Unknown]
  - Hypophagia [Unknown]
  - Acute kidney injury [Unknown]
  - Diarrhoea [Recovered/Resolved]

NARRATIVE: CASE EVENT DATE: 2018
